FAERS Safety Report 8264468-5 (Version None)
Quarter: 2012Q2

REPORT INFORMATION
  Report Type: 
  Country: None (occurrence: None)
  Receive Date: 20120403
  Receipt Date: 20120320
  Transmission Date: 20120825
  Serious: Yes (Hospitalization)
  Sender: FDA-Public Use
  Company Number: 2012AP000313

PATIENT
  Age: 42 Year
  Sex: Male

DRUGS (3)
  1. MYCOPHENOLATE MOFETIL [Suspect]
     Indication: CHORIORETINOPATHY
     Dosage: 1 G;BID; 1.5 G;BID; 500 MG;BID;PO
     Route: 048
     Dates: start: 20030801
  2. MYCOPHENOLATE MOFETIL [Suspect]
     Indication: CHORIORETINOPATHY
     Dosage: 1 G;BID; 1.5 G;BID; 500 MG;BID;PO
     Route: 048
     Dates: start: 20040101
  3. PREDNISONE [Concomitant]

REACTIONS (9)
  - ALANINE AMINOTRANSFERASE INCREASED [None]
  - WEIGHT DECREASED [None]
  - ORAL CANDIDIASIS [None]
  - ABDOMINAL TENDERNESS [None]
  - CYTOMEGALOVIRUS COLITIS [None]
  - CYTOMEGALOVIRUS VIRAEMIA [None]
  - CD4 LYMPHOCYTES DECREASED [None]
  - ASPARTATE AMINOTRANSFERASE INCREASED [None]
  - BLOOD ALBUMIN DECREASED [None]
